FAERS Safety Report 4882636-7 (Version None)
Quarter: 2006Q1

REPORT INFORMATION
  Report Type: 
  Country: None (occurrence: None)
  Receive Date: 20060117
  Receipt Date: 20051005
  Transmission Date: 20060701
  Serious: Yes (Hospitalization, Other)
  Sender: FDA-Public Use
  Company Number: US-MERCK-0510USA04322

PATIENT
  Age: 64 Year
  Sex: Female
  Weight: 148 kg

DRUGS (1)
  1. VIOXX [Suspect]
     Indication: ARTHRALGIA
     Route: 048
     Dates: start: 20040401, end: 20040701

REACTIONS (3)
  - CHEST PAIN [None]
  - SILENT MYOCARDIAL INFARCTION [None]
  - ULCER HAEMORRHAGE [None]
